FAERS Safety Report 18663149 (Version 1)
Quarter: 2020Q4

REPORT INFORMATION
  Report Type: Spontaneous
  Country: US (occurrence: US)
  Receive Date: 20201224
  Receipt Date: 20201224
  Transmission Date: 20210114
  Serious: No
  Sender: FDA-Public Use
  Company Number: US-TAKEDA-2020TUS059475

PATIENT
  Sex: Female

DRUGS (13)
  1. SOTALOL. [Concomitant]
     Active Substance: SOTALOL
  2. POTASSIUM [Concomitant]
     Active Substance: POTASSIUM
  3. DIPHENHYDRAMINE. [Concomitant]
     Active Substance: DIPHENHYDRAMINE
  4. SODIUM CHLORIDE. [Concomitant]
     Active Substance: SODIUM CHLORIDE
  5. EPINEPHRINE. [Concomitant]
     Active Substance: EPINEPHRINE
  6. LIDOCAINE. [Concomitant]
     Active Substance: LIDOCAINE
  7. PROBIOTIC [BIFIDOBACTERIUM INFANTIS;LACTOBACILLUS ACIDOPHILUS] [Concomitant]
  8. GAMMAGARD LIQUID [Suspect]
     Active Substance: HUMAN IMMUNOGLOBULIN G
     Indication: CHRONIC INFLAMMATORY DEMYELINATING POLYRADICULONEUROPATHY
     Dosage: 30 GRAM, Q4WEEKS
     Route: 042
     Dates: start: 20200921
  9. ROPINIROLE. [Concomitant]
     Active Substance: ROPINIROLE
  10. TEMAZEPAM. [Concomitant]
     Active Substance: TEMAZEPAM
  11. GLUCOSAMINE [Concomitant]
     Active Substance: GLUCOSAMINE
  12. ACETAMINOPHEN. [Concomitant]
     Active Substance: ACETAMINOPHEN
  13. ELIQUIS [Concomitant]
     Active Substance: APIXABAN

REACTIONS (1)
  - Fall [Unknown]
